FAERS Safety Report 8158573-1 (Version None)
Quarter: 2012Q1

REPORT INFORMATION
  Report Type: 
  Country: None (occurrence: None)
  Receive Date: 20120223
  Receipt Date: 20120215
  Transmission Date: 20120608
  Serious: Yes (Hospitalization, Other)
  Sender: FDA-Public Use
  Company Number: GB-JNJFOC-20111108039

PATIENT
  Sex: Female

DRUGS (2)
  1. PSEUDOEPHEDRINE HCL [Suspect]
     Indication: NASOPHARYNGITIS
     Route: 048
  2. PSEUDOEPHEDRINE HCL [Suspect]
     Route: 048

REACTIONS (1)
  - ANAPHYLACTIC REACTION [None]
